FAERS Safety Report 11054919 (Version 2)
Quarter: 2015Q2

REPORT INFORMATION
  Report Type: Spontaneous
  Country: TR (occurrence: None)
  Receive Date: 20150420
  Receipt Date: 20150508
  Transmission Date: 20150821
  Serious: Yes (Hospitalization)
  Sender: FDA-Public Use
  Company Number: 2015COR00071

PATIENT
  Age: 58 Year
  Sex: Male

DRUGS (7)
  1. ALPRAZOLAM (ALPRAZOLAM) UNKNOWN [Suspect]
     Active Substance: ALPRAZOLAM
     Indication: INSOMNIA
     Route: 048
  2. TRAMADOL (TRAMADOL) UNKNOWN [Suspect]
     Active Substance: TRAMADOL
     Indication: PAIN
     Route: 048
  3. ACETYLSALICYLIC ACID [Concomitant]
     Active Substance: ASPIRIN
  4. RAMIPRIL. [Concomitant]
     Active Substance: RAMIPRIL
  5. DEXKETOPROFEN [Concomitant]
     Active Substance: DEXKETOPROFEN
  6. AMLODIPINE [Concomitant]
     Active Substance: AMLODIPINE BESYLATE
  7. ISOSORBIDE 5-MONONITRATE [Concomitant]

REACTIONS (13)
  - Brain oedema [None]
  - General physical health deterioration [None]
  - Heart rate increased [None]
  - Mental status changes [None]
  - Hallucination, visual [None]
  - Acute kidney injury [None]
  - Loss of consciousness [None]
  - Drug interaction [None]
  - Oxygen saturation decreased [None]
  - Dysuria [None]
  - Dyspnoea [None]
  - Rales [None]
  - Haemodialysis [None]
